FAERS Safety Report 19228927 (Version 2)
Quarter: 2021Q3

REPORT INFORMATION
  Report Type: Spontaneous
  Country: US (occurrence: US)
  Receive Date: 20210506
  Receipt Date: 20210805
  Transmission Date: 20211014
  Serious: Yes (Hospitalization)
  Sender: FDA-Public Use
  Company Number: US-TEVA-2021-US-1907294

PATIENT
  Age: 22 Year
  Sex: Female

DRUGS (2)
  1. FLUOXETINE [Suspect]
     Active Substance: FLUOXETINE HYDROCHLORIDE
     Indication: DEPRESSION
     Dosage: 10 MILLIGRAM DAILY;
     Route: 065
  2. OXYCODONE [Interacting]
     Active Substance: OXYCODONE
     Indication: PROCEDURAL PAIN
     Dosage: 30 MILLIGRAM DAILY;
     Route: 065

REACTIONS (3)
  - Drug interaction [Recovered/Resolved]
  - Serotonin syndrome [Recovered/Resolved]
  - Lactic acidosis [Recovered/Resolved]
